FAERS Safety Report 18418755 (Version 10)
Quarter: 2021Q2

REPORT INFORMATION
  Report Type: Spontaneous
  Country: US (occurrence: US)
  Receive Date: 20201023
  Receipt Date: 20210503
  Transmission Date: 20210717
  Serious: Yes (Other)
  Sender: FDA-Public Use
  Company Number: US-GLAXOSMITHKLINE-US2020AMR210779

PATIENT
  Age: 53 Year
  Sex: Female

DRUGS (7)
  1. ZEJULA [Suspect]
     Active Substance: NIRAPARIB
     Dosage: 200 MG, QD
  2. ZEJULA [Suspect]
     Active Substance: NIRAPARIB
     Dosage: 200 MG, QD
     Route: 048
  3. ZEJULA [Suspect]
     Active Substance: NIRAPARIB
     Dosage: 200 MG, QD
  4. ZEJULA [Suspect]
     Active Substance: NIRAPARIB
     Indication: OVARIAN CANCER
     Dosage: 200 MG, QD
     Dates: start: 20201010
  5. ZEJULA [Suspect]
     Active Substance: NIRAPARIB
     Dosage: 200 MG, QD
     Route: 048
     Dates: end: 20210223
  6. ZEJULA [Suspect]
     Active Substance: NIRAPARIB
     Dosage: 200 MG, QD
     Route: 048
  7. ZEJULA [Suspect]
     Active Substance: NIRAPARIB
     Dosage: 200 MG, QD

REACTIONS (19)
  - Blood potassium decreased [Unknown]
  - Skin injury [Unknown]
  - Urinary tract infection [Recovering/Resolving]
  - Adverse drug reaction [Unknown]
  - Tendon rupture [Unknown]
  - Recurrent cancer [Unknown]
  - Condition aggravated [Unknown]
  - Limb injury [Unknown]
  - Fatigue [Not Recovered/Not Resolved]
  - Tendonitis [Unknown]
  - Osteoarthritis [Unknown]
  - Product dose omission issue [Unknown]
  - Arthralgia [Recovered/Resolved]
  - Hypertension [Unknown]
  - SARS-CoV-2 test positive [Unknown]
  - Oedema [Unknown]
  - Laboratory test abnormal [Unknown]
  - Drug ineffective [Unknown]
  - Magnetic resonance imaging abnormal [Unknown]

NARRATIVE: CASE EVENT DATE: 202009
